FAERS Safety Report 9990815 (Version 1)
Quarter: 2014Q1

REPORT INFORMATION
  Report Type: Report from Study
  Country: US (occurrence: US)
  Receive Date: 20140310
  Receipt Date: 20140310
  Transmission Date: 20141002
  Serious: No
  Sender: FDA-Public Use
  Company Number: US-ABBVIE-13P-163-1135493-00

PATIENT
  Age: 80 Year
  Sex: Female

DRUGS (6)
  1. HUMIRA [Suspect]
     Indication: PSORIASIS
     Dates: start: 20130731, end: 20130731
  2. HUMIRA [Suspect]
     Dates: start: 20130808
  3. ASPIRIN [Concomitant]
     Indication: PROPHYLAXIS
  4. ZETIA [Concomitant]
     Indication: PROPHYLAXIS
  5. PRAVASTATIN [Concomitant]
     Indication: PROPHYLAXIS
  6. LEVOTHYROXINE [Concomitant]
     Indication: PRODUCT USED FOR UNKNOWN INDICATION

REACTIONS (2)
  - Inappropriate schedule of drug administration [Unknown]
  - Drug ineffective [Not Recovered/Not Resolved]
